FAERS Safety Report 16474620 (Version 1)
Quarter: 2019Q2

REPORT INFORMATION
  Report Type: Spontaneous
  Country: US (occurrence: US)
  Receive Date: 20190625
  Receipt Date: 20190625
  Transmission Date: 20190711
  Serious: Yes (Death, Hospitalization)
  Sender: FDA-Public Use
  Company Number: US-ASTRAZENECA-2019SE90955

PATIENT
  Age: 33465 Day
  Sex: Female
  Weight: 61.2 kg

DRUGS (4)
  1. SEROQUEL XR [Suspect]
     Active Substance: QUETIAPINE FUMARATE
     Indication: AGITATION
     Dosage: AS REQUIRED
     Route: 048
     Dates: start: 201705, end: 201707
  2. SEROQUEL XR [Suspect]
     Active Substance: QUETIAPINE FUMARATE
     Indication: SLEEP DISORDER
     Dosage: AS REQUIRED
     Route: 048
     Dates: start: 201705, end: 201707
  3. INSULIN [Concomitant]
     Active Substance: INSULIN NOS
  4. SEROQUEL XR [Suspect]
     Active Substance: QUETIAPINE FUMARATE
     Indication: ANXIETY
     Dosage: AS REQUIRED
     Route: 048
     Dates: start: 201705, end: 201707

REACTIONS (8)
  - Fluid imbalance [Unknown]
  - Haemoglobin decreased [Unknown]
  - Pneumonia [Fatal]
  - Dehydration [Unknown]
  - Product use in unapproved indication [Unknown]
  - Dyspnoea [Unknown]
  - Off label use [Unknown]
  - Clostridium difficile infection [Unknown]

NARRATIVE: CASE EVENT DATE: 20170817
